FAERS Safety Report 5373708-1 (Version None)
Quarter: 2007Q2

REPORT INFORMATION
  Report Type: 
  Country: None (occurrence: None)
  Receive Date: 20070621
  Receipt Date: 20061110
  Transmission Date: 20071010
  Serious: No
  Sender: FDA-Public Use
  Company Number: 06H-163-0311124-00

PATIENT
  Sex: Female

DRUGS (1)
  1. LIDOCAINE HCL [Suspect]
     Indication: LOCAL ANAESTHESIA
     Dosage: INJECTION
     Dates: start: 20060101, end: 20060101

REACTIONS (2)
  - CONVULSION [None]
  - RESPIRATORY ARREST [None]
